FAERS Safety Report 18620225 (Version 2)
Quarter: 2020Q4

REPORT INFORMATION
  Report Type: Other
  Country: JP (occurrence: JP)
  Receive Date: 20201215
  Receipt Date: 20201217
  Transmission Date: 20210114
  Serious: Yes (Other)
  Sender: FDA-Public Use
  Company Number: JP-ROCHE-2731476

PATIENT
  Age: 6 Year
  Sex: Male

DRUGS (1)
  1. AVASTIN [Suspect]
     Active Substance: BEVACIZUMAB
     Indication: RETINAL NEOVASCULARISATION
     Dosage: DOSAGE IS UNCERTAIN.
     Route: 031

REACTIONS (3)
  - Intentional product use issue [Unknown]
  - Glaucoma [Unknown]
  - Off label use [Unknown]
